FAERS Safety Report 16149485 (Version 1)
Quarter: 2019Q2

REPORT INFORMATION
  Report Type: Not Available
  Country: US (occurrence: US)
  Receive Date: 20190402
  Receipt Date: 20190402
  Transmission Date: 20190711
  Serious: No
  Sender: FDA-Public Use
  Company Number: US-NEUROCRINE BIOSCIENCES INC.-2019NBI00759

PATIENT
  Age: 81 Year
  Sex: Female

DRUGS (2)
  1. INGREZZA [Suspect]
     Active Substance: VALBENAZINE
     Indication: OROMANDIBULAR DYSTONIA
     Route: 048
     Dates: start: 20190131, end: 20190207
  2. INGREZZA [Suspect]
     Active Substance: VALBENAZINE
     Route: 048
     Dates: start: 20190208, end: 20190313

REACTIONS (2)
  - Drug ineffective for unapproved indication [None]
  - Off label use [Unknown]

NARRATIVE: CASE EVENT DATE: 20190313
